FAERS Safety Report 24754287 (Version 1)
Quarter: 2024Q4

REPORT INFORMATION
  Report Type: Spontaneous
  Country: US (occurrence: None)
  Receive Date: 20241218
  Receipt Date: 20241218
  Transmission Date: 20250115
  Serious: Yes (Death)
  Sender: Public
  Company Number: None

PATIENT
  Age: 57 Year
  Sex: Male

DRUGS (11)
  1. SKYRIZI [Suspect]
     Active Substance: RISANKIZUMAB-RZAA
     Indication: Psoriasis
     Dosage: 150 MG EVERY 12 WEEKS SUBCUTANEOUS?
     Route: 058
     Dates: start: 20220831
  2. FLUTICASONE ALLERGY NASAL 50MCG SP [Concomitant]
  3. ACETAMINOPHEN\HYDROCODONE BITARTRATE [Concomitant]
     Active Substance: ACETAMINOPHEN\HYDROCODONE BITARTRATE
  4. HYDROXYZINE HCL 10MG TABLETS [Concomitant]
  5. ROSUVASTATIN [Concomitant]
     Active Substance: ROSUVASTATIN
  6. CELECOXIB 100MG CAPSULES [Concomitant]
  7. GABAPENTIN [Concomitant]
     Active Substance: GABAPENTIN
  8. FLUOXETINE HYDROCHLORIDE [Concomitant]
     Active Substance: FLUOXETINE HYDROCHLORIDE
  9. IBUPROFEN 200MG TABLETS [Concomitant]
  10. TYLENOL 325MG TABLETS [Concomitant]
  11. MULTIVITAMIN ADULTS 50+ TABLETS [Concomitant]

REACTIONS (1)
  - Carbon monoxide poisoning [None]

NARRATIVE: CASE EVENT DATE: 20241107
